FAERS Safety Report 7940740-0 (Version None)
Quarter: 2011Q4

REPORT INFORMATION
  Report Type: 
  Country: None (occurrence: None)
  Receive Date: 20111128
  Receipt Date: 20111114
  Transmission Date: 20120403
  Serious: No
  Sender: FDA-Public Use
  Company Number: US-B.I. PHARMACEUTICALS,INC./RIDGEFIELD-2011-BP-26237BP

PATIENT
  Sex: Female

DRUGS (9)
  1. PHENOBARBITAL TAB [Concomitant]
     Indication: ESSENTIAL TREMOR
     Route: 048
     Dates: start: 19600101
  2. COREG [Concomitant]
     Indication: HYPERTENSION
     Dosage: 6.25 MG
     Route: 048
     Dates: start: 20010101
  3. PRADAXA [Suspect]
     Indication: ATRIAL FIBRILLATION
     Dosage: 300 MG
     Route: 048
     Dates: start: 20110401
  4. NORVASC [Concomitant]
     Indication: HYPERTENSION
     Dosage: 10 MG
     Route: 048
  5. MINIPRESS [Concomitant]
     Indication: HYPERTENSION
     Dosage: 10 MG
     Route: 048
  6. SLOW MAG [Concomitant]
     Indication: ROUTINE HEALTH MAINTENANCE
     Route: 048
  7. SYNTHROID [Concomitant]
     Indication: THYROID DISORDER
     Dosage: 0.88 MG
     Route: 048
  8. LASIX [Concomitant]
     Dosage: 40 MG
     Route: 048
  9. POTASSIUM CHLORIDE [Concomitant]
     Indication: BLOOD POTASSIUM DECREASED
     Route: 048

REACTIONS (1)
  - ALOPECIA [None]
